FAERS Safety Report 6046602-0 (Version None)
Quarter: 2009Q1

REPORT INFORMATION
  Report Type: 
  Country: None (occurrence: None)
  Receive Date: 20090122
  Receipt Date: 20090114
  Transmission Date: 20090719
  Serious: Yes (Other)
  Sender: FDA-Public Use
  Company Number: PHHY2009GB01745

PATIENT

DRUGS (3)
  1. LIORESAL [Suspect]
     Dosage: 30 MG, TID
  2. GABAPENTIN [Concomitant]
  3. INSULIN [Concomitant]

REACTIONS (3)
  - LOSS OF CONSCIOUSNESS [None]
  - MIOSIS [None]
  - TREMOR [None]
